FAERS Safety Report 8880695 (Version 1)
Quarter: 2012Q4

REPORT INFORMATION
  Report Type: 
  Country: US (occurrence: US)
  Receive Date: 20121101
  Receipt Date: 20121101
  Transmission Date: 20130627
  Serious: Yes (Other)
  Sender: FDA-Public Use
  Company Number: US-GLAXOSMITHKLINE-A0815674A

PATIENT
  Age: 55 Year
  Sex: Male

DRUGS (1)
  1. AVANDIA [Suspect]
     Indication: DIABETES MELLITUS
     Dosage: 8MG Twice per day
     Route: 048
     Dates: start: 20000101, end: 20070101

REACTIONS (3)
  - Cardiac failure congestive [Not Recovered/Not Resolved]
  - Cardiomegaly [Unknown]
  - Cerebrovascular accident [Unknown]
